FAERS Safety Report 6867203-8 (Version None)
Quarter: 2010Q3

REPORT INFORMATION
  Report Type: 
  Country: None (occurrence: None)
  Receive Date: 20100722
  Receipt Date: 20100715
  Transmission Date: 20110219
  Serious: Yes (Hospitalization)
  Sender: FDA-Public Use
  Company Number: B0665560A

PATIENT
  Sex: Male
  Weight: 95 kg

DRUGS (11)
  1. ARIXTRA [Suspect]
     Dosage: 10MG PER DAY
     Route: 058
     Dates: start: 20100407, end: 20100427
  2. SERETIDE DISKUS [Concomitant]
     Dosage: 1PUFF TWICE PER DAY
     Route: 055
  3. LIRAGLUTIDE [Concomitant]
     Dosage: 1.2MG PER DAY
     Route: 058
     Dates: start: 20100409
  4. METFORMIN HCL [Concomitant]
     Dosage: 1000MG THREE TIMES PER DAY
     Route: 048
  5. GLICLAZIDE [Concomitant]
     Dosage: 120MG IN THE MORNING
     Route: 048
  6. PRAVASTATIN [Concomitant]
     Indication: PROPHYLAXIS
     Dosage: 200MG AT NIGHT
     Route: 048
  7. APROVEL [Concomitant]
     Indication: HYPERTENSIVE HEART DISEASE
     Dosage: 300MG IN THE MORNING
     Route: 048
  8. FUROSEMIDE [Concomitant]
     Dosage: 40MG IN THE MORNING
     Route: 048
  9. KARDEGIC [Concomitant]
     Dosage: 75MG PER DAY
     Route: 048
  10. SPIRIVA [Concomitant]
     Indication: CHRONIC OBSTRUCTIVE PULMONARY DISEASE
     Dosage: 1PUFF IN THE MORNING
     Route: 055
  11. XYZAL [Concomitant]
     Indication: CHRONIC OBSTRUCTIVE PULMONARY DISEASE
     Dosage: 5MG IN THE MORNING
     Route: 048

REACTIONS (5)
  - ANAEMIA [None]
  - INCORRECT DRUG ADMINISTRATION DURATION [None]
  - MUSCLE HAEMORRHAGE [None]
  - OVERDOSE [None]
  - THROMBOCYTOSIS [None]
